FAERS Safety Report 8406187-8 (Version None)
Quarter: 2012Q2

REPORT INFORMATION
  Report Type: 
  Country: None (occurrence: None)
  Receive Date: 20120604
  Receipt Date: 20120525
  Transmission Date: 20120825
  Serious: Yes (Hospitalization, Other)
  Sender: FDA-Public Use
  Company Number: US-BAYER-2012-044648

PATIENT
  Age: 41 Year
  Sex: Female
  Weight: 69.841 kg

DRUGS (13)
  1. ZITHROMAX [Concomitant]
     Indication: PAINFUL RESPIRATION
  2. PREDNISONE [Concomitant]
     Indication: BRONCHOSPASM
  3. CLINDAMYCIN [Concomitant]
     Dosage: 300 MG, QID
     Route: 048
     Dates: start: 20100118
  4. HYDROCODONE W/IBUPROFEN [Concomitant]
     Dosage: 7.5 MG/200 MG
     Route: 048
     Dates: start: 20100128
  5. VENTOLIN HFA [Concomitant]
     Indication: BRONCHOSPASM
  6. AVELOX [Concomitant]
     Indication: BRONCHOSPASM
  7. VENTOLIN HFA [Concomitant]
     Indication: BRONCHITIS
     Dosage: 2 PUFF(S), QID, PRN FOR 14 DAYS
     Dates: start: 20100223, end: 20100308
  8. PREDNISONE [Concomitant]
     Indication: BRONCHITIS
     Dosage: 20 MG, BID FOR 5 DAYS
     Route: 048
     Dates: start: 20100223, end: 20100227
  9. ZITHROMAX [Concomitant]
     Indication: CHEST PAIN
     Dosage: 250 MG TABLETS 6-PAK 5 DAYS
     Route: 048
     Dates: start: 20100218, end: 20100222
  10. YAZ [Suspect]
     Indication: PREMENSTRUAL SYNDROME
     Dosage: UNK
     Dates: start: 20090624, end: 20100309
  11. YAZ [Suspect]
     Indication: ACNE
  12. YASMIN [Suspect]
  13. AVELOX [Concomitant]
     Indication: BRONCHITIS
     Dosage: 400 MG TABLET DAILY FOR 5 DAYS
     Route: 048
     Dates: start: 20100223, end: 20100227

REACTIONS (11)
  - ATELECTASIS [None]
  - PAIN IN EXTREMITY [None]
  - PULMONARY INFARCTION [None]
  - PAIN [None]
  - HYPOXIA [None]
  - SYNCOPE [None]
  - PULMONARY EMBOLISM [None]
  - INJURY [None]
  - DEEP VEIN THROMBOSIS [None]
  - OEDEMA PERIPHERAL [None]
  - LETHARGY [None]
